FAERS Safety Report 7514642-8 (Version None)
Quarter: 2011Q2

REPORT INFORMATION
  Report Type: 
  Country: None (occurrence: None)
  Receive Date: 20110601
  Receipt Date: 20110516
  Transmission Date: 20111010
  Serious: Yes (Hospitalization, Other)
  Sender: FDA-Public Use
  Company Number: US-BAYER-2011-003310

PATIENT
  Age: 34 Year
  Sex: Female
  Weight: 85.714 kg

DRUGS (4)
  1. YASMIN [Suspect]
     Indication: PRODUCT USED FOR UNKNOWN INDICATION
     Dosage: UNK
     Dates: start: 20050701, end: 20091001
  2. ALLERGY INJECTIONS [Concomitant]
     Indication: RHINITIS SEASONAL
     Dosage: UNK UNK, Q3WK
     Route: 030
     Dates: start: 19800101
  3. YAZ [Suspect]
     Indication: PRODUCT USED FOR UNKNOWN INDICATION
     Dosage: UNK
     Dates: start: 20050701, end: 20091001
  4. DROSPIRENONE AND ETHINYL ESTRADIOL [Suspect]
     Indication: PRODUCT USED FOR UNKNOWN INDICATION
     Dosage: UNK
     Dates: start: 20050701, end: 20091001

REACTIONS (6)
  - CHOLELITHIASIS [None]
  - INJURY [None]
  - CHOLECYSTITIS CHRONIC [None]
  - DYSPEPSIA [None]
  - PAIN [None]
  - DEFORMITY [None]
